FAERS Safety Report 5498057-2 (Version None)
Quarter: 2007Q4

REPORT INFORMATION
  Report Type: 
  Country: None (occurrence: None)
  Receive Date: 20071025
  Receipt Date: 20071015
  Transmission Date: 20080405
  Serious: Yes (Other)
  Sender: FDA-Public Use
  Company Number: US-JNJFOC-20070801999

PATIENT
  Sex: Female
  Weight: 83.92 kg

DRUGS (11)
  1. REMICADE [Suspect]
     Route: 042
  2. REMICADE [Suspect]
     Route: 042
  3. REMICADE [Suspect]
     Indication: COLITIS ULCERATIVE
     Route: 042
  4. IBUPROFEN [Concomitant]
  5. ZITHROMAX [Concomitant]
     Indication: UPPER RESPIRATORY TRACT INFECTION
  6. PREDNISONE [Concomitant]
  7. VITAMIN B-12 [Concomitant]
  8. CALCIUM [Concomitant]
  9. FOSAMAX [Concomitant]
  10. FLONASE [Concomitant]
  11. M.V.I. [Concomitant]

REACTIONS (2)
  - ARTHRALGIA [None]
  - GRANULOMATOUS LIVER DISEASE [None]
